FAERS Safety Report 6666326-6 (Version None)
Quarter: 2010Q2

REPORT INFORMATION
  Report Type: 
  Country: None (occurrence: None)
  Receive Date: 20100402
  Receipt Date: 20100323
  Transmission Date: 20101027
  Serious: Yes (Hospitalization)
  Sender: FDA-Public Use
  Company Number: US-CELGENEUS-163-21880-10021778

PATIENT
  Sex: Female

DRUGS (3)
  1. REVLIMID [Suspect]
     Route: 048
     Dates: start: 20080905
  2. REVLIMID [Suspect]
     Route: 048
     Dates: start: 20100222
  3. DOXIL [Suspect]
     Indication: DRUG USE FOR UNKNOWN INDICATION
     Route: 065
     Dates: start: 20080519, end: 20100303

REACTIONS (5)
  - ASTHENIA [None]
  - DIARRHOEA [None]
  - FAILURE TO THRIVE [None]
  - PANCYTOPENIA [None]
  - SYNCOPE [None]
